FAERS Safety Report 7427862-8 (Version None)
Quarter: 2011Q2

REPORT INFORMATION
  Report Type: 
  Country: None (occurrence: None)
  Receive Date: 20110418
  Receipt Date: 20110418
  Transmission Date: 20111010
  Serious: Yes (Other)
  Sender: FDA-Public Use
  Company Number: None

PATIENT
  Sex: Female

DRUGS (1)
  1. MULTIHANCE [Suspect]
     Dosage: 14ML

REACTIONS (4)
  - DYSPNOEA [None]
  - FEELING HOT [None]
  - THROAT TIGHTNESS [None]
  - FLUSHING [None]
